FAERS Safety Report 7023246-5 (Version None)
Quarter: 2010Q3

REPORT INFORMATION
  Report Type: 
  Country: None (occurrence: None)
  Receive Date: 20100930
  Receipt Date: 20100924
  Transmission Date: 20110219
  Serious: Yes (Life-Threatening, Hospitalization)
  Sender: FDA-Public Use
  Company Number: GB-AMGEN-QUU427406

PATIENT
  Sex: Female
  Weight: 71.2 kg

DRUGS (8)
  1. ENBREL [Suspect]
     Indication: RHEUMATOID ARTHRITIS
     Dosage: 25MG PRE-FILLED SYRINGE TWICE WEEKLY
     Route: 058
     Dates: start: 20030101
  2. ENBREL [Suspect]
     Route: 058
  3. METHOTREXATE [Suspect]
     Indication: RHEUMATOID ARTHRITIS
     Route: 048
  4. CALCIUM [Concomitant]
     Dosage: UNKNOWN
  5. PREDNISOLONE [Concomitant]
     Indication: RESPIRATORY DISORDER
     Dosage: 35MG, UNKNOWN FREQUENCY
     Route: 048
     Dates: start: 20100601
  6. CELECOXIB [Concomitant]
     Route: 048
  7. AZATHIOPRINE [Concomitant]
     Indication: RHEUMATOID ARTHRITIS
     Route: 048
     Dates: start: 20100825
  8. OMEPRAZOLE [Concomitant]
     Dosage: 10MG, FREQUENCY UNSPECIFIED

REACTIONS (1)
  - PNEUMONITIS [None]
